FAERS Safety Report 10347016 (Version 1)
Quarter: 2014Q3

REPORT INFORMATION
  Report Type: Report from Study
  Country: BR (occurrence: BR)
  Receive Date: 20140729
  Receipt Date: 20140729
  Transmission Date: 20150326
  Serious: Yes (Other)
  Sender: FDA-Public Use
  Company Number: PHHY2014BR091622

PATIENT
  Sex: Female
  Weight: 82 kg

DRUGS (5)
  1. RIVOTRIL [Concomitant]
     Active Substance: CLONAZEPAM
     Indication: SLEEP DISORDER
     Dosage: 1 DF, AT NIGHT
  2. CABERGOLINE. [Suspect]
     Active Substance: CABERGOLINE
     Indication: BLOOD GROWTH HORMONE
     Dosage: 4 DF, UNK (2 DF ON MONDAY AND 2 DF ON  FRIDAY)
  3. HYDROCORTISONE. [Concomitant]
     Active Substance: HYDROCORTISONE
     Indication: HORMONE REPLACEMENT THERAPY
     Dosage: 1 DF, DAILY
  4. CITALOPRAM [Concomitant]
     Active Substance: CITALOPRAM HYDROBROMIDE
     Indication: DEPRESSION
     Dosage: 2 DF, DAILY
  5. SANDOSTATIN LAR DEPOT [Suspect]
     Active Substance: OCTREOTIDE ACETATE
     Indication: BLOOD GROWTH HORMONE
     Dosage: 30 MG, EVERY MONTH

REACTIONS (8)
  - Thyroid neoplasm [Unknown]
  - Weight increased [Not Recovered/Not Resolved]
  - Eating disorder [Unknown]
  - Gait disturbance [Unknown]
  - Pain in extremity [Not Recovered/Not Resolved]
  - Arrhythmia [Unknown]
  - Hormone level abnormal [Unknown]
  - Feeling abnormal [Unknown]
